FAERS Safety Report 5477518-6 (Version None)
Quarter: 2007Q4

REPORT INFORMATION
  Report Type: 
  Country: None (occurrence: None)
  Receive Date: 20071001
  Receipt Date: 20070913
  Transmission Date: 20080405
  Serious: Yes (Death, Other)
  Sender: FDA-Public Use
  Company Number: GXKR2007SG07968

PATIENT
  Age: 48 Year
  Sex: Male

DRUGS (4)
  1. PROPRANOLOL [Suspect]
     Indication: PALPITATIONS
     Dosage: 40 MG BID UNK
  2. GLYBURIDE [Concomitant]
  3. METFORMIN HCL [Concomitant]
  4. CARBIMAZOLE (CARBIMAZOLE) [Concomitant]

REACTIONS (8)
  - CARDIAC ARREST [None]
  - HEPATITIS [None]
  - HYPERTHYROIDISM [None]
  - HYPOTENSION [None]
  - MULTI-ORGAN FAILURE [None]
  - RENAL FAILURE ACUTE [None]
  - SINUS BRADYCARDIA [None]
  - UNRESPONSIVE TO STIMULI [None]
